FAERS Safety Report 16907929 (Version 1)
Quarter: 2019Q4

REPORT INFORMATION
  Report Type: Spontaneous
  Country: CN (occurrence: CN)
  Receive Date: 20191011
  Receipt Date: 20191011
  Transmission Date: 20200122
  Serious: Yes (Hospitalization, Other)
  Sender: FDA-Public Use
  Company Number: CN-BAYER-2019-180434

PATIENT
  Age: 45 Year
  Sex: Male

DRUGS (48)
  1. LINEZOLID. [Concomitant]
     Active Substance: LINEZOLID
     Indication: ACINETOBACTER TEST POSITIVE
  2. TIGECYCLINE. [Concomitant]
     Active Substance: TIGECYCLINE
     Indication: STAPHYLOCOCCUS TEST POSITIVE
  3. POLYMYXIN B. [Concomitant]
     Active Substance: POLYMYXIN B
     Indication: PNEUMONIA KLEBSIELLA
     Dosage: UNK
     Dates: start: 2018
  4. MEROPENEM. [Concomitant]
     Active Substance: MEROPENEM
     Indication: INFECTION
  5. MOXIFLOXACIN ORAL [Suspect]
     Active Substance: MOXIFLOXACIN
     Indication: ACINETOBACTER TEST POSITIVE
  6. MOXIFLOXACIN ORAL [Suspect]
     Active Substance: MOXIFLOXACIN
     Indication: INFECTION
  7. LINEZOLID. [Concomitant]
     Active Substance: LINEZOLID
     Indication: CLOSTRIDIUM TEST POSITIVE
  8. TIGECYCLINE. [Concomitant]
     Active Substance: TIGECYCLINE
     Indication: INFECTION
  9. POLYMYXIN B. [Concomitant]
     Active Substance: POLYMYXIN B
     Indication: CLOSTRIDIUM TEST POSITIVE
  10. MEROPENEM. [Concomitant]
     Active Substance: MEROPENEM
     Indication: ACINETOBACTER TEST POSITIVE
  11. MEROPENEM. [Concomitant]
     Active Substance: MEROPENEM
     Indication: CLOSTRIDIUM TEST POSITIVE
  12. TAZOBACTAM [Concomitant]
     Active Substance: TAZOBACTAM
     Indication: PNEUMONIA KLEBSIELLA
     Dosage: UNK
     Dates: start: 2018
  13. TAZOBACTAM [Concomitant]
     Active Substance: TAZOBACTAM
     Indication: BURKHOLDERIA CEPACIA COMPLEX INFECTION
  14. LINEZOLID. [Concomitant]
     Active Substance: LINEZOLID
     Indication: BURKHOLDERIA CEPACIA COMPLEX INFECTION
  15. LINEZOLID. [Concomitant]
     Active Substance: LINEZOLID
     Indication: INFECTION
  16. VANCOMYCIN [Concomitant]
     Active Substance: VANCOMYCIN
     Indication: STAPHYLOCOCCUS TEST POSITIVE
  17. VANCOMYCIN [Concomitant]
     Active Substance: VANCOMYCIN
     Indication: CLOSTRIDIUM TEST POSITIVE
  18. MOXIFLOXACIN ORAL [Suspect]
     Active Substance: MOXIFLOXACIN
     Indication: PNEUMONIA KLEBSIELLA
     Dosage: UNK
     Dates: start: 2018
  19. TIGECYCLINE. [Concomitant]
     Active Substance: TIGECYCLINE
     Indication: ACINETOBACTER TEST POSITIVE
  20. TIGECYCLINE. [Concomitant]
     Active Substance: TIGECYCLINE
     Indication: CLOSTRIDIUM TEST POSITIVE
  21. VANCOMYCIN [Concomitant]
     Active Substance: VANCOMYCIN
     Indication: INFECTION
  22. PIPERACILLIN. [Concomitant]
     Active Substance: PIPERACILLIN SODIUM
     Indication: INFECTION
  23. TAZOBACTAM [Concomitant]
     Active Substance: TAZOBACTAM
     Indication: CLOSTRIDIUM TEST POSITIVE
  24. POLYMYXIN B. [Concomitant]
     Active Substance: POLYMYXIN B
     Indication: INFECTION
  25. MEROPENEM. [Concomitant]
     Active Substance: MEROPENEM
     Indication: PNEUMONIA KLEBSIELLA
     Dosage: UNK
     Dates: start: 2018
  26. PIPERACILLIN. [Concomitant]
     Active Substance: PIPERACILLIN SODIUM
     Indication: STAPHYLOCOCCUS TEST POSITIVE
  27. PIPERACILLIN. [Concomitant]
     Active Substance: PIPERACILLIN SODIUM
     Indication: CLOSTRIDIUM TEST POSITIVE
  28. TAZOBACTAM [Concomitant]
     Active Substance: TAZOBACTAM
     Indication: INFECTION
  29. MOXIFLOXACIN ORAL [Suspect]
     Active Substance: MOXIFLOXACIN
     Indication: STAPHYLOCOCCUS TEST POSITIVE
  30. LINEZOLID. [Concomitant]
     Active Substance: LINEZOLID
     Indication: PNEUMONIA KLEBSIELLA
     Dosage: UNK
     Dates: start: 2018
  31. TIGECYCLINE. [Concomitant]
     Active Substance: TIGECYCLINE
     Indication: PNEUMONIA KLEBSIELLA
     Dosage: UNK
     Dates: start: 2018
  32. POLYMYXIN B. [Concomitant]
     Active Substance: POLYMYXIN B
     Indication: STAPHYLOCOCCUS TEST POSITIVE
  33. VANCOMYCIN [Concomitant]
     Active Substance: VANCOMYCIN
     Indication: PNEUMONIA KLEBSIELLA
     Dosage: UNK
     Dates: start: 2018
  34. VANCOMYCIN [Concomitant]
     Active Substance: VANCOMYCIN
     Indication: BURKHOLDERIA CEPACIA COMPLEX INFECTION
  35. PIPERACILLIN. [Concomitant]
     Active Substance: PIPERACILLIN SODIUM
     Indication: ACINETOBACTER TEST POSITIVE
  36. PIPERACILLIN. [Concomitant]
     Active Substance: PIPERACILLIN SODIUM
     Indication: BURKHOLDERIA CEPACIA COMPLEX INFECTION
  37. TAZOBACTAM [Concomitant]
     Active Substance: TAZOBACTAM
     Indication: ACINETOBACTER TEST POSITIVE
  38. MOXIFLOXACIN ORAL [Suspect]
     Active Substance: MOXIFLOXACIN
     Indication: BURKHOLDERIA CEPACIA COMPLEX INFECTION
  39. TIGECYCLINE. [Concomitant]
     Active Substance: TIGECYCLINE
     Indication: BURKHOLDERIA CEPACIA COMPLEX INFECTION
  40. POLYMYXIN B. [Concomitant]
     Active Substance: POLYMYXIN B
     Indication: ACINETOBACTER TEST POSITIVE
  41. MEROPENEM. [Concomitant]
     Active Substance: MEROPENEM
     Indication: BURKHOLDERIA CEPACIA COMPLEX INFECTION
  42. PIPERACILLIN. [Concomitant]
     Active Substance: PIPERACILLIN SODIUM
     Indication: PNEUMONIA KLEBSIELLA
     Dosage: UNK
     Dates: start: 2018
  43. MOXIFLOXACIN ORAL [Suspect]
     Active Substance: MOXIFLOXACIN
     Indication: CLOSTRIDIUM TEST POSITIVE
  44. LINEZOLID. [Concomitant]
     Active Substance: LINEZOLID
     Indication: STAPHYLOCOCCUS TEST POSITIVE
  45. POLYMYXIN B. [Concomitant]
     Active Substance: POLYMYXIN B
     Indication: BURKHOLDERIA CEPACIA COMPLEX INFECTION
  46. VANCOMYCIN [Concomitant]
     Active Substance: VANCOMYCIN
     Indication: ACINETOBACTER TEST POSITIVE
  47. MEROPENEM. [Concomitant]
     Active Substance: MEROPENEM
     Indication: STAPHYLOCOCCUS TEST POSITIVE
  48. TAZOBACTAM [Concomitant]
     Active Substance: TAZOBACTAM
     Indication: STAPHYLOCOCCUS TEST POSITIVE

REACTIONS (12)
  - Sepsis [None]
  - Off label use [None]
  - Renal impairment [None]
  - Blood creatinine increased [None]
  - Empyema [None]
  - Hepatic function abnormal [None]
  - Bone marrow failure [None]
  - Vital capacity decreased [None]
  - Right ventricular failure [None]
  - Pulmonary fibrosis [None]
  - Catheter site infection [None]
  - Product use in unapproved indication [None]

NARRATIVE: CASE EVENT DATE: 2018
